FAERS Safety Report 9840261 (Version 1)
Quarter: 2014Q1

REPORT INFORMATION
  Report Type: Spontaneous
  Country: ES (occurrence: ES)
  Receive Date: 20140124
  Receipt Date: 20140124
  Transmission Date: 20141002
  Serious: Yes (Other)
  Sender: FDA-Public Use
  Company Number: ES-VERTEX PHARMACEUTICALS INC-2014-000335

PATIENT
  Sex: 0

DRUGS (1)
  1. INCIVO [Suspect]
     Indication: HEPATITIS C

REACTIONS (5)
  - Tooth disorder [Unknown]
  - Toothache [Unknown]
  - Tooth fracture [Unknown]
  - Dental caries [Unknown]
  - Off label use [Unknown]
